FAERS Safety Report 4834942-X (Version None)
Quarter: 2005Q4

REPORT INFORMATION
  Report Type: 
  Country: None (occurrence: None)
  Receive Date: 20051115
  Receipt Date: 20051104
  Transmission Date: 20060501
  Serious: Yes (Hospitalization, Other)
  Sender: FDA-Public Use
  Company Number: KII-2005-0019474

PATIENT
  Age: 25 Year
  Sex: Male

DRUGS (3)
  1. OXYCONTIN [Suspect]
     Indication: INTENTIONAL DRUG MISUSE
     Dosage: SEE TEXT
  2. METHADONE HCL [Suspect]
     Indication: INTENTIONAL DRUG MISUSE
     Dosage: SEE TEXT
  3. HYDROCODONE BITARTRATE + ACETAMINOPHEN [Suspect]
     Indication: INTENTIONAL DRUG MISUSE
     Dosage: SEE TEXT

REACTIONS (6)
  - COMA [None]
  - MYOGLOBIN BLOOD INCREASED [None]
  - POLYSUBSTANCE ABUSE [None]
  - SLUGGISHNESS [None]
  - TROPONIN INCREASED [None]
  - WHITE BLOOD CELL COUNT ABNORMAL [None]
